FAERS Safety Report 25346034 (Version 1)
Quarter: 2025Q2

REPORT INFORMATION
  Report Type: Report from Study
  Country: US (occurrence: US)
  Receive Date: 20250522
  Receipt Date: 20250522
  Transmission Date: 20250717
  Serious: Yes (Other)
  Sender: NOVARTIS
  Company Number: US-002147023-NVSC2025US081097

PATIENT
  Sex: Male

DRUGS (1)
  1. ENTRESTO [Suspect]
     Active Substance: SACUBITRIL\VALSARTAN
     Indication: Product used for unknown indication
     Dosage: 97 MG (97-103MG)
     Route: 048
     Dates: start: 20240624

REACTIONS (4)
  - Angina pectoris [Unknown]
  - Dizziness [Unknown]
  - Asthenia [Unknown]
  - Sleep disorder [Unknown]
